FAERS Safety Report 12192806 (Version 3)
Quarter: 2017Q1

REPORT INFORMATION
  Report Type: Report from Study
  Country: US (occurrence: US)
  Receive Date: 20160318
  Receipt Date: 20170104
  Transmission Date: 20170428
  Serious: Yes (Hospitalization)
  Sender: FDA-Public Use
  Company Number: US-ACTELION-A-NJ2016-133134

PATIENT
  Age: 17 Year
  Sex: Male

DRUGS (5)
  1. PHENOBARBITAL. [Concomitant]
     Active Substance: PHENOBARBITAL
     Dosage: 100 MG, UNK
     Dates: start: 20160328
  2. ONFI [Concomitant]
     Active Substance: CLOBAZAM
     Dosage: 10 MG, UNK
     Dates: start: 20160328
  3. ZAVESCA [Suspect]
     Active Substance: MIGLUSTAT
     Indication: GAUCHER^S DISEASE
     Dosage: 200 MG, TID
     Route: 048
     Dates: start: 20100617
  4. FYCOMPA [Concomitant]
     Active Substance: PERAMPANEL
     Dosage: 10 MG, UNK
     Dates: start: 20160328
  5. LAMICTAL [Concomitant]
     Active Substance: LAMOTRIGINE
     Dosage: 100 MG, UNK
     Dates: start: 20160328

REACTIONS (2)
  - General physical condition abnormal [Unknown]
  - Seizure [Unknown]
